FAERS Safety Report 16488986 (Version 1)
Quarter: 2019Q2

REPORT INFORMATION
  Report Type: Spontaneous
  Country: CA (occurrence: CA)
  Receive Date: 20190628
  Receipt Date: 20190628
  Transmission Date: 20190711
  Serious: Yes (Other)
  Sender: FDA-Public Use
  Company Number: CA-AUROBINDO-AUR-APL-2019-035476

PATIENT

DRUGS (3)
  1. NUVARING [Suspect]
     Active Substance: ETHINYL ESTRADIOL\ETONOGESTREL
     Indication: PRODUCT USED FOR UNKNOWN INDICATION
     Dosage: UNK
     Route: 065
  2. DULOXETINE. [Suspect]
     Active Substance: DULOXETINE
     Indication: DEPRESSION
     Dosage: 60 MILLIGRAM, TWO TIMES A DAY
     Route: 048
  3. NAPROXEN. [Concomitant]
     Active Substance: NAPROXEN
     Indication: PRODUCT USED FOR UNKNOWN INDICATION
     Dosage: UNK
     Route: 065

REACTIONS (11)
  - Anger [Recovering/Resolving]
  - Condition aggravated [Recovering/Resolving]
  - Negativism [Recovering/Resolving]
  - Screaming [Recovering/Resolving]
  - Mood altered [Recovering/Resolving]
  - Suicidal ideation [Recovering/Resolving]
  - Crying [Recovering/Resolving]
  - Negative thoughts [Recovering/Resolving]
  - Affect lability [Recovering/Resolving]
  - Product substitution issue [Recovering/Resolving]
  - Feelings of worthlessness [Recovering/Resolving]
